FAERS Safety Report 8398146-9 (Version None)
Quarter: 2012Q2

REPORT INFORMATION
  Report Type: 
  Country: None (occurrence: None)
  Receive Date: 20120531
  Receipt Date: 20120525
  Transmission Date: 20120825
  Serious: Yes (Congenital Anomaly)
  Sender: FDA-Public Use
  Company Number: PHHY2012GB044982

PATIENT
  Sex: Male

DRUGS (4)
  1. CLOBAZAM [Suspect]
     Route: 064
  2. LAMOTRIGINE [Suspect]
     Route: 064
  3. PROCHLORPERAZINE [Concomitant]
     Route: 064
  4. VALPROATE SODIUM [Suspect]
     Route: 064

REACTIONS (5)
  - HIP DYSPLASIA [None]
  - HYPOSPADIAS [None]
  - WRIST DEFORMITY [None]
  - LIMB MALFORMATION [None]
  - FOETAL EXPOSURE DURING PREGNANCY [None]
